FAERS Safety Report 6957748-4 (Version None)
Quarter: 2010Q3

REPORT INFORMATION
  Report Type: 
  Country: None (occurrence: None)
  Receive Date: 20100831
  Receipt Date: 20100830
  Transmission Date: 20110219
  Serious: Yes (Other)
  Sender: FDA-Public Use
  Company Number: US-BRACCO-004762

PATIENT
  Sex: Female

DRUGS (1)
  1. KINEVAC [Suspect]
     Indication: DIAGNOSTIC PROCEDURE
     Route: 047
     Dates: start: 20100713, end: 20100713

REACTIONS (6)
  - ACCIDENTAL EXPOSURE [None]
  - ERYTHEMA OF EYELID [None]
  - EYE PAIN [None]
  - EYELID OEDEMA [None]
  - MYDRIASIS [None]
  - VISION BLURRED [None]
